FAERS Safety Report 9427651 (Version 1)
Quarter: 2013Q3

REPORT INFORMATION
  Report Type: Spontaneous
  Country: US (occurrence: None)
  Receive Date: 20130729
  Receipt Date: 20130729
  Transmission Date: 20140515
  Serious: No
  Sender: FDA-Public Use
  Company Number: None

PATIENT
  Age: 54 None
  Sex: Male

DRUGS (6)
  1. DEGARELIX [Suspect]
     Indication: PROSTATE CANCER
     Dosage: 1 MG INJECTIONS 28 DAYS INJECTION ABDOMEN
     Dates: start: 20130710, end: 20130710
  2. DEGARELIX [Suspect]
     Indication: PROPHYLAXIS
     Dosage: 1 MG INJECTIONS 28 DAYS INJECTION ABDOMEN
     Dates: start: 20130710, end: 20130710
  3. FIRMAGON [Suspect]
     Dates: start: 20130710, end: 20130710
  4. VITAMIN B12 [Concomitant]
  5. VIT E [Concomitant]
  6. FOLIC ACID [Concomitant]

REACTIONS (6)
  - Erythema [None]
  - Swelling [None]
  - Mass [None]
  - Hot flush [None]
  - Joint swelling [None]
  - Mental impairment [None]
